FAERS Safety Report 9224248 (Version 1)
Quarter: 2013Q2

REPORT INFORMATION
  Report Type: Spontaneous
  Country: US (occurrence: None)
  Receive Date: 20130409
  Receipt Date: 20130409
  Transmission Date: 20140414
  Serious: Yes (Other)
  Sender: FDA-Public Use
  Company Number: None

PATIENT
  Age: 29 Year
  Sex: Female
  Weight: 66.68 kg

DRUGS (3)
  1. LIDOCAINE [Suspect]
     Indication: ANAESTHESIA
     Dosage: 10CC
     Route: 008
     Dates: start: 20130323
  2. PENAUS SULFATE [Concomitant]
  3. PENATAL VITAMIN [Concomitant]

REACTIONS (3)
  - Hypotension [None]
  - Maternal exposure timing unspecified [None]
  - Dizziness [None]
